FAERS Safety Report 15233856 (Version 1)
Quarter: 2018Q3

REPORT INFORMATION
  Report Type: Spontaneous
  Country: US (occurrence: US)
  Receive Date: 20180802
  Receipt Date: 20180802
  Transmission Date: 20181010
  Serious: No
  Sender: FDA-Public Use
  Company Number: US-GLAXOSMITHKLINE-US2018133883

PATIENT
  Age: 48 Year
  Sex: Female

DRUGS (1)
  1. ABREVA [Suspect]
     Active Substance: DOCOSANOL
     Indication: ORAL HERPES
     Dosage: USING IT 7 OR 8 TIMES A DAY
     Dates: start: 20180720

REACTIONS (4)
  - Condition aggravated [Unknown]
  - Skin fissures [Unknown]
  - Inappropriate schedule of drug administration [Unknown]
  - Oral herpes [Unknown]

NARRATIVE: CASE EVENT DATE: 20180720
